FAERS Safety Report 8468800-9 (Version None)
Quarter: 2012Q2

REPORT INFORMATION
  Report Type: 
  Country: None (occurrence: None)
  Receive Date: 20120626
  Receipt Date: 20120622
  Transmission Date: 20120825
  Serious: Yes (Life-Threatening, Hospitalization)
  Sender: FDA-Public Use
  Company Number: US-MPIJNJ-2011-04493

PATIENT
  Sex: Female
  Weight: 71.76 kg

DRUGS (4)
  1. DECADRON [Suspect]
     Indication: CARDIAC AMYLOIDOSIS
     Dosage: 20 MG, CYCLIC
     Route: 048
     Dates: start: 20110621
  2. LASIX [Concomitant]
     Indication: PRODUCT USED FOR UNKNOWN INDICATION
  3. VELCADE [Suspect]
     Indication: CARDIAC AMYLOIDOSIS
     Dosage: 1.3 MG/M2, CYCLIC
     Route: 058
     Dates: start: 20110621, end: 20110830
  4. ALDACTONE [Concomitant]
     Indication: PRODUCT USED FOR UNKNOWN INDICATION

REACTIONS (5)
  - RESPIRATORY FAILURE [None]
  - SEPTIC SHOCK [None]
  - INTESTINAL PERFORATION [None]
  - CONSTIPATION [None]
  - PERITONITIS [None]
